FAERS Safety Report 5862440 (Version 3)
Quarter: 2014Q3

REPORT INFORMATION
  Report Type: Report from Study
  Country: US (occurrence: US)
  Receive Date: 20050817
  Receipt Date: 20140821
  Transmission Date: 20150326
  Serious: Yes (Congenital Anomaly, Other)
  Sender: FDA-Public Use
  Company Number: US-BRISTOL-MYERS SQUIBB COMPANY-13074588

PATIENT
  Age: 1 Day
  Sex: Female
  Weight: 2.04 kg

DRUGS (8)
  1. NORVIR [Suspect]
     Active Substance: RITONAVIR
     Dosage: TAKEN AT CONCEPTION TO DELIVERY.
     Route: 064
     Dates: start: 20030923
  2. RETROVIR [Suspect]
     Active Substance: ZIDOVUDINE
     Dosage: AT DELIVERY
     Route: 064
     Dates: start: 20050802, end: 20050803
  3. VIREAD [Suspect]
     Active Substance: TENOFOVIR DISOPROXIL FUMARATE
     Dosage: 11 WEEKS TO DELIVERY.
     Route: 064
     Dates: start: 20050209
  4. VIDEX [Suspect]
     Active Substance: DIDANOSINE
     Dosage: TAKEN AT CONCEPTION TO 11 WEEKS.
     Route: 064
     Dates: start: 20040928, end: 20050209
  5. EPIVIR [Suspect]
     Active Substance: LAMIVUDINE
     Dosage: TAKEN AT CONCEPTION TO DELIVERY.
     Route: 064
     Dates: start: 20040323
  6. REYATAZ [Suspect]
     Active Substance: ATAZANAVIR SULFATE
     Dosage: TAKEN AT CONCEPTION TO DELIVERY.
     Route: 064
     Dates: start: 20030923
  7. FOLATE [Concomitant]
     Active Substance: FOLATE SODIUM
     Dosage: GIVEN DURING FIRST THRU THIRD TRIMESTER.
     Route: 064
  8. AMPICILLIN [Concomitant]
     Active Substance: AMPICILLIN
     Dosage: GIVEN DURING THIRD TRIMESTER.
     Route: 064

REACTIONS (3)
  - Foetal exposure during pregnancy [Recovered/Resolved]
  - Foetal growth restriction [Unknown]
  - Bradycardia [Recovered/Resolved]

NARRATIVE: CASE EVENT DATE: 20050803
